FAERS Safety Report 8192869-2 (Version None)
Quarter: 2012Q1

REPORT INFORMATION
  Report Type: 
  Country: None (occurrence: None)
  Receive Date: 20120308
  Receipt Date: 20120228
  Transmission Date: 20120608
  Serious: Yes (Other)
  Sender: FDA-Public Use
  Company Number: US-JNJFOC-20120214481

PATIENT
  Sex: Female
  Weight: 84.82 kg

DRUGS (16)
  1. HUMIRA [Suspect]
     Indication: RHEUMATOID ARTHRITIS
     Route: 058
     Dates: start: 20110801
  2. HUMIRA [Suspect]
     Route: 058
     Dates: start: 20100610, end: 20100101
  3. REMICADE [Suspect]
     Indication: RHEUMATOID ARTHRITIS
     Route: 042
     Dates: start: 20100101, end: 20110701
  4. LEVOTHYROXINE SODIUM [Concomitant]
     Indication: HYPOTHYROIDISM
     Route: 065
  5. REMICADE [Suspect]
     Indication: PSORIATIC ARTHROPATHY
     Route: 042
     Dates: start: 20100101, end: 20110701
  6. DICLOFENAC SODIUM [Concomitant]
     Indication: ARTHRALGIA
     Route: 065
  7. LIPITAC [Concomitant]
     Indication: NUTRITIONAL SUPPORT
     Route: 065
  8. OLUX E [Concomitant]
     Indication: PSORIASIS
     Route: 065
  9. SIMVASTATIN [Concomitant]
     Indication: BLOOD CHOLESTEROL INCREASED
     Route: 065
  10. HUMIRA [Suspect]
     Route: 058
     Dates: start: 20110801
  11. AMLODIPINE BESYLATE AND BENAZEPRIL HCL [Concomitant]
     Indication: HYPERTENSION
     Route: 065
  12. PROCTOFOAM [Concomitant]
     Indication: PSORIASIS
     Route: 061
  13. CETIRIZINE HCL [Concomitant]
     Indication: MULTIPLE ALLERGIES
     Route: 065
  14. ESOMEPRAZOLE SODIUM [Concomitant]
     Indication: GASTROOESOPHAGEAL REFLUX DISEASE
     Route: 065
  15. HUMIRA [Suspect]
     Indication: PSORIATIC ARTHROPATHY
     Route: 058
     Dates: start: 20100610, end: 20100101
  16. MONTELUKAST SODIUM [Concomitant]
     Route: 065

REACTIONS (2)
  - PANCYTOPENIA [None]
  - APHTHOUS STOMATITIS [None]
